FAERS Safety Report 4962472-3 (Version None)
Quarter: 2006Q2

REPORT INFORMATION
  Report Type: 
  Country: None (occurrence: None)
  Receive Date: 20060404
  Receipt Date: 20051020
  Transmission Date: 20061013
  Serious: Yes (Hospitalization, Disabling)
  Sender: FDA-Public Use
  Company Number: US-MERCK-0510USA08447

PATIENT
  Age: 65 Year
  Sex: Male
  Weight: 68 kg

DRUGS (24)
  1. VIOXX [Suspect]
     Indication: ARTHRITIS
     Route: 048
     Dates: start: 20010509, end: 20010929
  2. BUSPAR [Concomitant]
     Route: 065
  3. LIPITOR [Concomitant]
     Route: 065
  4. TENORMIN [Concomitant]
     Route: 065
  5. FLOMAX [Concomitant]
     Route: 065
  6. ASPIRIN [Concomitant]
     Route: 065
  7. ZOLOFT [Concomitant]
     Route: 065
  8. NITROSTAT [Concomitant]
     Route: 065
  9. OCUFLOX [Concomitant]
     Route: 065
  10. TRAZODONE HYDROCHLORIDE [Concomitant]
     Route: 065
  11. LAMISIL [Concomitant]
     Route: 065
  12. DOXAZOSIN MESYLATE [Concomitant]
     Route: 065
  13. LISINOPRIL [Concomitant]
     Route: 065
  14. BACTROBAN [Concomitant]
     Route: 065
  15. ZITHROMAX [Concomitant]
     Route: 065
  16. PHENAZOPYRIDINE HYDROCHLORIDE [Concomitant]
     Route: 065
  17. CIPRO [Concomitant]
     Route: 065
  18. UROCIT-K [Concomitant]
     Route: 065
  19. VICODIN [Concomitant]
     Route: 065
  20. HYDROCODONE BITARTRATE [Concomitant]
     Route: 065
  21. GUAIFENESIN [Concomitant]
     Route: 065
  22. NEXIUM [Concomitant]
     Route: 065
  23. PREVACID [Concomitant]
     Route: 065
  24. DIFLUCAN [Concomitant]
     Route: 065

REACTIONS (19)
  - ANGINA PECTORIS [None]
  - ASTHENIA [None]
  - ATELECTASIS [None]
  - BRAIN STEM INFARCTION [None]
  - CALCULUS URETERIC [None]
  - CORONARY ARTERY DISEASE [None]
  - DEPRESSION [None]
  - DYSKINESIA [None]
  - FLANK PAIN [None]
  - GALLBLADDER DISORDER [None]
  - HYPERGLYCAEMIA [None]
  - HYPERTENSION [None]
  - HYPOAESTHESIA [None]
  - LYMPHOMA [None]
  - MYOCARDIAL INFARCTION [None]
  - NICOTINE DEPENDENCE [None]
  - PYREXIA [None]
  - TRANSIENT ISCHAEMIC ATTACK [None]
  - URINARY RETENTION [None]
